FAERS Safety Report 21079147 (Version 5)
Quarter: 2023Q1

REPORT INFORMATION
  Report Type: Spontaneous
  Country: PL (occurrence: PL)
  Receive Date: 20220714
  Receipt Date: 20230209
  Transmission Date: 20230417
  Serious: Yes (Hospitalization, Other)
  Sender: FDA-Public Use
  Company Number: PL-AUROBINDO-AUR-APL-2022-025502

PATIENT
  Age: 78 Year
  Sex: Female

DRUGS (24)
  1. AMLODIPINE BESYLATE [Interacting]
     Active Substance: AMLODIPINE BESYLATE
     Indication: Cardiac failure
     Dosage: 10 MILLIGRAM, ONCE A DAY
     Route: 065
  2. AMLODIPINE BESYLATE [Interacting]
     Active Substance: AMLODIPINE BESYLATE
     Indication: Hypertension
  3. ACETAMINOPHEN [Suspect]
     Active Substance: ACETAMINOPHEN
     Indication: Antipyresis
     Dosage: UNK
     Route: 065
  4. ACETAMINOPHEN [Suspect]
     Active Substance: ACETAMINOPHEN
     Indication: Bronchitis
  5. ACETAMINOPHEN [Suspect]
     Active Substance: ACETAMINOPHEN
     Indication: Pyrexia
  6. ATORVASTATIN CALCIUM [Suspect]
     Active Substance: ATORVASTATIN CALCIUM
     Indication: Product used for unknown indication
     Dosage: 10 MILLIGRAM, ONCE A DAY
     Route: 065
  7. METOPROLOL [Interacting]
     Active Substance: METOPROLOL
     Indication: Cardiac failure
     Dosage: 12.5 MILLIGRAM, ONCE A DAY, 12.5 MG, PER DAY
     Route: 065
  8. METOPROLOL [Interacting]
     Active Substance: METOPROLOL
     Indication: Hypertension
  9. CLARITHROMYCIN [Suspect]
     Active Substance: CLARITHROMYCIN
     Indication: Bronchitis
     Dosage: 500 MILLIGRAM, TWO TIMES A DAY (1000 MG ONCE A DAY)
     Route: 065
  10. ERDOSTEINE [Interacting]
     Active Substance: ERDOSTEINE
     Indication: Bronchitis
     Dosage: 600 MILLIGRAM, ONCE A DAY,300 MG, 2X PER DAY(600 MG)
     Route: 065
  11. TORSEMIDE [Interacting]
     Active Substance: TORSEMIDE
     Indication: Hypertension
     Dosage: 5 MILLIGRAM, ONCE A DAY,5 MG, PER DAY
     Route: 065
  12. TORSEMIDE [Interacting]
     Active Substance: TORSEMIDE
     Indication: Cardiac failure
  13. ZOFENOPRIL [Suspect]
     Active Substance: ZOFENOPRIL
     Indication: Hypertension
     Dosage: 7.5 MILLIGRAM, ONCE A DAY,7.5 MG, PER DAY
     Route: 065
  14. ZOFENOPRIL [Suspect]
     Active Substance: ZOFENOPRIL
     Indication: Cardiac failure
  15. ERDOSTEINE [Concomitant]
     Active Substance: ERDOSTEINE
     Indication: Bronchitis
     Dosage: 300 MILLIGRAM, TWO TIMES A DAY
     Route: 065
  16. METOPROLOL AL [Concomitant]
     Indication: Cardiac failure
     Dosage: 12.5 MILLIGRAM, ONCE A DAY
     Route: 065
  17. METOPROLOL AL [Concomitant]
     Indication: Hypertension
  18. ACETAMINOPHEN [Concomitant]
     Active Substance: ACETAMINOPHEN
     Indication: Pyrexia
     Dosage: UNK
     Route: 065
  19. ACETAMINOPHEN [Concomitant]
     Active Substance: ACETAMINOPHEN
     Indication: Bronchitis
  20. ACETAMINOPHEN [Concomitant]
     Active Substance: ACETAMINOPHEN
     Indication: Antipyresis
  21. TORSEMIDE [Concomitant]
     Active Substance: TORSEMIDE
     Indication: Hypertension
     Dosage: 5 MILLIGRAM, ONCE A DAY
     Route: 065
  22. TORSEMIDE [Concomitant]
     Active Substance: TORSEMIDE
     Indication: Cardiac failure
  23. ZOFENOPRIL [Concomitant]
     Active Substance: ZOFENOPRIL
     Indication: Hypertension
     Dosage: 7.5 MILLIGRAM, ONCE A DAY
     Route: 065
  24. ZOFENOPRIL [Concomitant]
     Active Substance: ZOFENOPRIL
     Indication: Cardiac failure

REACTIONS (10)
  - Hyponatraemia [Unknown]
  - Bronchitis [Recovering/Resolving]
  - Drug interaction [Unknown]
  - Thirst [Unknown]
  - Oedema peripheral [Unknown]
  - Asthenia [Unknown]
  - Vomiting [Unknown]
  - Nausea [Unknown]
  - Peripheral swelling [Unknown]
  - Labelled drug-drug interaction issue [Unknown]
